FAERS Safety Report 15918410 (Version 11)
Quarter: 2020Q4

REPORT INFORMATION
  Report Type: Spontaneous
  Country: US (occurrence: US)
  Receive Date: 20190205
  Receipt Date: 20201107
  Transmission Date: 20210113
  Serious: Yes (Hospitalization, Disabling, Other)
  Sender: FDA-Public Use
  Company Number: US-SA-2019SA028050

PATIENT

DRUGS (17)
  1. ABILIFY [Concomitant]
     Active Substance: ARIPIPRAZOLE
  2. CYMBALTA [Concomitant]
     Active Substance: DULOXETINE HYDROCHLORIDE
  3. MORPHINE SULFATE. [Concomitant]
     Active Substance: MORPHINE SULFATE
     Indication: PAIN
  4. PROMETHAZINE [Concomitant]
     Active Substance: PROMETHAZINE HYDROCHLORIDE
  5. ROBAXIN [Concomitant]
     Active Substance: METHOCARBAMOL
  6. ROBAXIN [Concomitant]
     Active Substance: METHOCARBAMOL
     Dosage: UNK
  7. NORCO [Concomitant]
     Active Substance: ACETAMINOPHEN\HYDROCODONE BITARTRATE
     Indication: PAIN MANAGEMENT
     Dosage: UNK
  8. ALEVE [Concomitant]
     Active Substance: NAPROXEN SODIUM
     Dosage: UNK UNK, PRN
  9. BOTOX [Concomitant]
     Active Substance: ONABOTULINUMTOXINA
     Indication: HEADACHE
  10. ASPIRINE 325 MG [Concomitant]
     Active Substance: ASPIRIN
     Dosage: UNK UNK, PRN
  11. AUBAGIO [Suspect]
     Active Substance: TERIFLUNOMIDE
     Dosage: 14 MG QD
     Route: 048
     Dates: start: 201912
  12. NORCO [Concomitant]
     Active Substance: ACETAMINOPHEN\HYDROCODONE BITARTRATE
     Indication: PAIN
     Dosage: UNK
  13. AUBAGIO [Suspect]
     Active Substance: TERIFLUNOMIDE
     Dosage: 1 DF, QD
     Route: 048
  14. LYRICA [Concomitant]
     Active Substance: PREGABALIN
     Indication: PAIN
  15. AUBAGIO [Suspect]
     Active Substance: TERIFLUNOMIDE
     Indication: PRODUCT USED FOR UNKNOWN INDICATION
     Dosage: 1 DF, QD
     Route: 048
     Dates: start: 2018
  16. AUBAGIO [Suspect]
     Active Substance: TERIFLUNOMIDE
     Dosage: 14 MG, QD
     Route: 048
  17. COPAXONE [Concomitant]
     Active Substance: GLATIRAMER ACETATE
     Dosage: 1 ML THREE TIMES PER WEEK W/48 HRS BETWEEN DOSES

REACTIONS (24)
  - Product dose omission in error [Unknown]
  - Weight decreased [Unknown]
  - Balance disorder [Not Recovered/Not Resolved]
  - Malaise [Unknown]
  - Protein total increased [Unknown]
  - Hypoaesthesia [Not Recovered/Not Resolved]
  - Walking aid user [Not Recovered/Not Resolved]
  - Neuropathy peripheral [Not Recovered/Not Resolved]
  - Osteoarthritis [Unknown]
  - Meningitis [Unknown]
  - Nausea [Unknown]
  - Decreased appetite [Recovering/Resolving]
  - Asthenia [Recovering/Resolving]
  - Back pain [Unknown]
  - Nasopharyngitis [Not Recovered/Not Resolved]
  - Neck pain [Unknown]
  - White blood cell count increased [Unknown]
  - Vision blurred [Not Recovered/Not Resolved]
  - Depression [Unknown]
  - Staphylococcal bacteraemia [Recovering/Resolving]
  - Arthralgia [Unknown]
  - Blood glucose decreased [Unknown]
  - Eye pain [Not Recovered/Not Resolved]
  - Urinary incontinence [Not Recovered/Not Resolved]
